FAERS Safety Report 9680835 (Version 1)
Quarter: 2013Q4

REPORT INFORMATION
  Report Type: Spontaneous
  Country: US (occurrence: None)
  Receive Date: 20131108
  Receipt Date: 20131108
  Transmission Date: 20140711
  Serious: No
  Sender: FDA-Public Use
  Company Number: None

PATIENT
  Age: 40 Year
  Sex: Female
  Weight: 95.71 kg

DRUGS (2)
  1. PARAGUARD [Suspect]
  2. MULTIVIT [Concomitant]

REACTIONS (2)
  - Device breakage [None]
  - Complication of device removal [None]
